FAERS Safety Report 18288573 (Version 1)
Quarter: 2020Q3

REPORT INFORMATION
  Report Type: Spontaneous
  Country: US (occurrence: US)
  Receive Date: 20200921
  Receipt Date: 20200921
  Transmission Date: 20201103
  Serious: Yes (Hospitalization)
  Sender: FDA-Public Use
  Company Number: None

PATIENT
  Sex: Female

DRUGS (1)
  1. TALTZ [Suspect]
     Active Substance: IXEKIZUMAB
     Indication: ILLNESS
     Dosage: ON HOLD
     Route: 058
     Dates: start: 20200507

REACTIONS (2)
  - Therapy interrupted [None]
  - Vascular graft [None]
